FAERS Safety Report 16840850 (Version 2)
Quarter: 2019Q4

REPORT INFORMATION
  Report Type: Report from Study
  Country: US (occurrence: US)
  Receive Date: 20190923
  Receipt Date: 20191104
  Transmission Date: 20200122
  Serious: Yes (Other)
  Sender: FDA-Public Use
  Company Number: US-JNJFOC-20190926055

PATIENT
  Sex: Female

DRUGS (1)
  1. USTEKINUMAB [Suspect]
     Active Substance: USTEKINUMAB
     Indication: CROHN^S DISEASE
     Route: 058

REACTIONS (6)
  - Diarrhoea [Unknown]
  - Nail infection [Unknown]
  - Arthralgia [Unknown]
  - Colectomy [Unknown]
  - Urinary tract infection [Unknown]
  - Cellulitis [Unknown]
